FAERS Safety Report 4785197-6 (Version None)
Quarter: 2005Q3

REPORT INFORMATION
  Report Type: 
  Country: None (occurrence: None)
  Receive Date: 20050930
  Receipt Date: 20050823
  Transmission Date: 20060218
  Serious: Yes (Life-Threatening, Hospitalization, Other)
  Sender: FDA-Public Use
  Company Number: US-MERCK-0508USA03819

PATIENT
  Age: 3 Year
  Sex: Male
  Weight: 19 kg

DRUGS (6)
  1. SINGULAIR [Suspect]
     Indication: ASTHMA
     Route: 048
     Dates: start: 20050430
  2. CORTICOSTEROIDS (UNSPECIFIED) [Concomitant]
     Route: 065
  3. ZYRTEC [Concomitant]
     Indication: ASTHMA
     Route: 048
     Dates: start: 20050430
  4. ZYRTEC [Concomitant]
     Indication: HYPERSENSITIVITY
     Route: 048
     Dates: start: 20050430
  5. QVAR 40 [Concomitant]
     Indication: ASTHMA
     Route: 065
     Dates: start: 20050430
  6. QVAR 40 [Concomitant]
     Indication: HYPERSENSITIVITY
     Route: 065
     Dates: start: 20050430

REACTIONS (1)
  - HEPATIC FAILURE [None]
